FAERS Safety Report 11911784 (Version 1)
Quarter: 2016Q1

REPORT INFORMATION
  Report Type: Spontaneous
  Country: US (occurrence: US)
  Receive Date: 20160112
  Receipt Date: 20160112
  Transmission Date: 20160526
  Serious: Yes (Hospitalization)
  Sender: FDA-Public Use
  Company Number: US-SHIRE-US201600015

PATIENT
  Age: 71 Year
  Sex: Female

DRUGS (1)
  1. NATPARA (PARATHYROID HORMONE) [Suspect]
     Active Substance: PARATHYROID HORMONE
     Indication: HYPOPARATHYROIDISM
     Dosage: 50 ?G, UNK
     Route: 058
     Dates: start: 20151205, end: 20160101

REACTIONS (5)
  - Renal disorder [Unknown]
  - Abdominal pain upper [Recovered/Resolved]
  - Dysarthria [Recovering/Resolving]
  - Blood calcium increased [Recovering/Resolving]
  - Incoherent [Unknown]

NARRATIVE: CASE EVENT DATE: 20151228
